FAERS Safety Report 14632093 (Version 1)
Quarter: 2018Q1

REPORT INFORMATION
  Report Type: Spontaneous
  Country: US (occurrence: US)
  Receive Date: 20180313
  Receipt Date: 20180313
  Transmission Date: 20180509
  Serious: No
  Sender: FDA-Public Use
  Company Number: US-TEVA-2018-US-866559

PATIENT
  Age: 2 Year
  Sex: Female

DRUGS (1)
  1. CEFDINIR. [Suspect]
     Active Substance: CEFDINIR
     Indication: URINARY TRACT INFECTION
     Route: 065

REACTIONS (1)
  - Faeces discoloured [Unknown]
